FAERS Safety Report 21952607 (Version 1)
Quarter: 2023Q1

REPORT INFORMATION
  Report Type: Report from Study
  Country: US (occurrence: US)
  Receive Date: 20230203
  Receipt Date: 20230203
  Transmission Date: 20230417
  Serious: Yes (Hospitalization)
  Sender: FDA-Public Use
  Company Number: US-EXELIXIS-CABO-22050018

PATIENT
  Sex: Male
  Weight: 90.703 kg

DRUGS (10)
  1. CABOMETYX [Suspect]
     Active Substance: CABOZANTINIB S-MALATE
     Indication: Renal cancer
     Dosage: 60 MG, QD
     Route: 048
     Dates: start: 20211221
  2. CABOMETYX [Suspect]
     Active Substance: CABOZANTINIB S-MALATE
     Dosage: 40 MG
     Route: 048
  3. ASPIRIN [Concomitant]
     Active Substance: ASPIRIN
  4. FENTANYL [Concomitant]
     Active Substance: FENTANYL
  5. FUROSEMIDE [Concomitant]
     Active Substance: FUROSEMIDE
  6. ACETAMINOPHEN\HYDROCODONE [Concomitant]
     Active Substance: ACETAMINOPHEN\HYDROCODONE
  7. VITAMINS [Concomitant]
     Active Substance: VITAMINS
  8. PANTOPRAZOLE [Concomitant]
     Active Substance: PANTOPRAZOLE
  9. PREDNISONE [Concomitant]
     Active Substance: PREDNISONE
  10. VITAMIN D3 [Concomitant]
     Active Substance: CHOLECALCIFEROL

REACTIONS (1)
  - Dehydration [Unknown]
